FAERS Safety Report 7759758-6 (Version None)
Quarter: 2011Q3

REPORT INFORMATION
  Report Type: 
  Country: None (occurrence: None)
  Receive Date: 20110919
  Receipt Date: 20110909
  Transmission Date: 20111222
  Serious: Yes (Hospitalization)
  Sender: FDA-Public Use
  Company Number: PHHY2011TR80494

PATIENT
  Age: 28 Year
  Sex: Male

DRUGS (3)
  1. RANITIDINE [Suspect]
     Dosage: 50 MG, UNK
     Route: 042
  2. PHENIRAMINE [Concomitant]
     Dosage: 45 MG, UNK
  3. SODIUM CHLORIDE [Concomitant]
     Dosage: 100 ML, UNK

REACTIONS (4)
  - BRADYCARDIA [None]
  - DIZZINESS [None]
  - NODAL RHYTHM [None]
  - HYPOTENSION [None]
